FAERS Safety Report 8329326-6 (Version None)
Quarter: 2012Q2

REPORT INFORMATION
  Report Type: 
  Country: None (occurrence: None)
  Receive Date: 20120502
  Receipt Date: 20120416
  Transmission Date: 20120825
  Serious: No
  Sender: FDA-Public Use
  Company Number: US-ASTRAZENECA-2012SE19195

PATIENT
  Sex: Female
  Weight: 70.8 kg

DRUGS (9)
  1. OMEPRAZOLE [Concomitant]
  2. CELEBREX [Concomitant]
     Indication: PAIN
  3. TRAZODONE HCL [Concomitant]
  4. BKM 120 [Concomitant]
     Indication: BREAST CANCER METASTATIC
     Dates: start: 20110221, end: 20120202
  5. CASTOR OIL BASED MEDICATION [Suspect]
     Route: 065
  6. MULTI-VITAMIN [Concomitant]
  7. COMPAZINE [Concomitant]
  8. TRAMADOL HCL [Concomitant]
  9. FASLODEX [Suspect]
     Indication: BREAST CANCER METASTATIC
     Route: 030
     Dates: start: 20111212

REACTIONS (2)
  - THROAT IRRITATION [None]
  - DYSPNOEA [None]
